FAERS Safety Report 5071677-5 (Version None)
Quarter: 2006Q3

REPORT INFORMATION
  Report Type: 
  Country: None (occurrence: None)
  Receive Date: 20060804
  Receipt Date: 20060310
  Transmission Date: 20061208
  Serious: Yes (Life-Threatening, Hospitalization)
  Sender: FDA-Public Use
  Company Number: 2006UW04152

PATIENT
  Age: 19 Year
  Sex: Male
  Weight: 70.5 kg

DRUGS (6)
  1. SEROQUEL [Suspect]
     Indication: PSYCHOTIC DISORDER
     Route: 048
     Dates: start: 20060207
  2. SEROQUEL [Suspect]
     Route: 048
     Dates: start: 20060210, end: 20060213
  3. LAMICTAL [Concomitant]
     Indication: AFFECTIVE DISORDER
     Route: 048
     Dates: end: 20060213
  4. LAMICTAL [Concomitant]
     Route: 048
  5. LEXAPRO [Concomitant]
     Indication: DEPRESSION
     Route: 048
  6. LEXAPRO [Concomitant]
     Route: 048

REACTIONS (2)
  - BLOOD CREATINE PHOSPHOKINASE INCREASED [None]
  - DYSTONIA [None]
